FAERS Safety Report 18072838 (Version 2)
Quarter: 2022Q1

REPORT INFORMATION
  Report Type: Spontaneous
  Country: US (occurrence: US)
  Receive Date: 20200727
  Receipt Date: 20220308
  Transmission Date: 20220424
  Serious: Yes (Other)
  Sender: FDA-Public Use
  Company Number: US-SAARTEMIS-SAC202007230182

PATIENT
  Age: 52 Year
  Sex: Female

DRUGS (2)
  1. ZANTAC [Suspect]
     Active Substance: RANITIDINE HYDROCHLORIDE
     Indication: Dyspepsia
     Dosage: UNK
     Dates: start: 2010, end: 201911
  2. ZANTAC [Suspect]
     Active Substance: RANITIDINE HYDROCHLORIDE
     Dosage: UNK, QD
     Dates: start: 201501, end: 201911

REACTIONS (1)
  - Oesophageal carcinoma [Unknown]

NARRATIVE: CASE EVENT DATE: 20191127
